FAERS Safety Report 15889406 (Version 1)
Quarter: 2019Q1

REPORT INFORMATION
  Report Type: Spontaneous
  Country: US (occurrence: US)
  Receive Date: 20190130
  Receipt Date: 20190130
  Transmission Date: 20190417
  Serious: Yes (Hospitalization, Other)
  Sender: FDA-Public Use
  Company Number: US-PFIZER INC-2019042775

PATIENT
  Age: 67 Year
  Sex: Male
  Weight: 104.3 kg

DRUGS (3)
  1. LEVOFLOXACIN. [Suspect]
     Active Substance: LEVOFLOXACIN
     Dosage: UNK
  2. CIPRO [Suspect]
     Active Substance: CIPROFLOXACIN HYDROCHLORIDE
     Dosage: UNK
     Route: 042
  3. CIPROFLOXACIN. [Suspect]
     Active Substance: CIPROFLOXACIN
     Dosage: UNK

REACTIONS (12)
  - Neuropathy peripheral [Unknown]
  - Abdominal pain upper [Unknown]
  - Arthritis [Unknown]
  - Pain [Unknown]
  - Renal disorder [Unknown]
  - Toxicity to various agents [Unknown]
  - Nausea [Unknown]
  - Bronchitis [Unknown]
  - Drug hypersensitivity [Unknown]
  - Diarrhoea [Unknown]
  - Abdominal discomfort [Unknown]
  - Insomnia [Unknown]
